FAERS Safety Report 11008197 (Version 1)
Quarter: 2015Q2

REPORT INFORMATION
  Report Type: Spontaneous
  Country: ES (occurrence: ES)
  Receive Date: 20150410
  Receipt Date: 20150410
  Transmission Date: 20150821
  Serious: Yes (Death, Hospitalization)
  Sender: FDA-Public Use
  Company Number: ES-ACCORD-029882

PATIENT
  Age: 49 Year

DRUGS (6)
  1. CYTARABINE/CYTARABINE HYDROCHLORIDE/CYTARABINE OCFOSFATE [Suspect]
     Active Substance: CYTARABINE
     Indication: NON-HODGKIN^S LYMPHOMA
     Dosage: DOSE: 3 G/M2/12 H DURING THE DAYS 2 AND 3 OF THE CYCLE
  2. CYCLOPHOSPHAMIDE/CYCLOPHOSPHAMIDE MONOHYDRATE [Suspect]
     Active Substance: CYCLOPHOSPHAMIDE
     Indication: NON-HODGKIN^S LYMPHOMA
     Dosage: HYPERCVAD REGIMEN?DOSE CYCLE: 12 G/M2; ACCUMULATED DOSE: 24 G/M2
  3. METHOTREXATE [Suspect]
     Active Substance: METHOTREXATE
     Indication: NON-HODGKIN^S LYMPHOMA
     Dosage: HYPERCVAD REGIMEN?DOSE CYCLE: 12 G/M2; ACCUMULATED DOSE: 24 G/M2
  4. VINCRISTINE [Suspect]
     Active Substance: VINCRISTINE
     Indication: NON-HODGKIN^S LYMPHOMA
     Dosage: HYPERCVAD REGIMEN?DOSE CYCLE: 12 G/M2; ACCUMULATED DOSE: 24 G/M2
  5. DOXORUBICIN [Suspect]
     Active Substance: DOXORUBICIN
     Indication: NON-HODGKIN^S LYMPHOMA
     Dosage: HYPERCVAD REGIMEN?DOSE CYCLE: 12 G/M2; ACCUMULATED DOSE: 24 G/M2
  6. DEXAMETHASONE. [Suspect]
     Active Substance: DEXAMETHASONE
     Indication: NON-HODGKIN^S LYMPHOMA
     Dosage: HYPERCVAD REGIMEN?DOSE CYCLE: 12 G/M2; ACCUMULATED DOSE: 24 G/M2

REACTIONS (9)
  - Dysphagia [Unknown]
  - Somnolence [Unknown]
  - Nystagmus [Unknown]
  - Acute kidney injury [Unknown]
  - Off label use [Unknown]
  - Hepatic failure [Fatal]
  - Cerebellar syndrome [Unknown]
  - Confusional state [Unknown]
  - Vomiting [Unknown]
